FAERS Safety Report 10179441 (Version 2)
Quarter: 2014Q3

REPORT INFORMATION
  Report Type: Spontaneous
  Country: IT (occurrence: IT)
  Receive Date: 20140519
  Receipt Date: 20140724
  Transmission Date: 20150326
  Serious: Yes (Other)
  Sender: FDA-Public Use
  Company Number: IT-SA-2014SA060194

PATIENT
  Age: 89 Year
  Sex: Female

DRUGS (4)
  1. LASIX [Suspect]
     Active Substance: FUROSEMIDE
     Indication: PRODUCT USED FOR UNKNOWN INDICATION
     Route: 065
     Dates: start: 20140101, end: 20140425
  2. LACIREX [Concomitant]
     Dosage: STRENGTH: 4MG
  3. ACETYLSALICYLIC ACID [Concomitant]
     Active Substance: ASPIRIN
  4. ZESTRIL [Concomitant]
     Active Substance: LISINOPRIL
     Dosage: STRENGTH: 5MG

REACTIONS (2)
  - Syncope [Recovering/Resolving]
  - Dehydration [Recovering/Resolving]

NARRATIVE: CASE EVENT DATE: 20140425
